FAERS Safety Report 8346702-6 (Version None)
Quarter: 2012Q2

REPORT INFORMATION
  Report Type: 
  Country: None (occurrence: None)
  Receive Date: 20120509
  Receipt Date: 20120426
  Transmission Date: 20120825
  Serious: Yes (Disabling)
  Sender: FDA-Public Use
  Company Number: DE-ASTRAZENECA-2012SE27638

PATIENT
  Age: 31 Year
  Sex: Female

DRUGS (5)
  1. SEROQUEL [Suspect]
     Indication: DISSOCIATIVE DISORDER
     Route: 048
  2. SEROQUEL [Suspect]
     Indication: BORDERLINE PERSONALITY DISORDER
     Route: 048
  3. SEROQUEL [Suspect]
     Route: 048
  4. SEROQUEL [Suspect]
     Route: 048
  5. VENLAFAXINE [Suspect]
     Route: 048

REACTIONS (3)
  - MEMORY IMPAIRMENT [None]
  - DYSPHAGIA [None]
  - COGNITIVE DISORDER [None]
